FAERS Safety Report 6902534-4 (Version None)
Quarter: 2010Q3

REPORT INFORMATION
  Report Type: 
  Country: None (occurrence: None)
  Receive Date: 20100730
  Receipt Date: 20100716
  Transmission Date: 20110219
  Serious: Yes (Hospitalization)
  Sender: FDA-Public Use
  Company Number: 2010JP004168

PATIENT
  Age: 58 Year
  Sex: Female

DRUGS (13)
  1. TACROLIMUS [Suspect]
     Indication: LIVER TRANSPLANT
     Dosage: SEE IMAGE
     Route: 048
     Dates: start: 20100125, end: 20100127
  2. TACROLIMUS [Suspect]
     Indication: LIVER TRANSPLANT
     Dosage: SEE IMAGE
     Route: 048
     Dates: start: 20100128, end: 20100130
  3. TACROLIMUS [Suspect]
     Indication: LIVER TRANSPLANT
     Dosage: SEE IMAGE
     Route: 048
     Dates: start: 20100131, end: 20100201
  4. TACROLIMUS [Suspect]
     Indication: LIVER TRANSPLANT
     Dosage: SEE IMAGE
     Route: 048
     Dates: start: 20100202, end: 20100204
  5. TACROLIMUS [Suspect]
     Indication: LIVER TRANSPLANT
     Dosage: SEE IMAGE
     Route: 048
     Dates: start: 20100205, end: 20100207
  6. TACROLIMUS [Suspect]
     Indication: LIVER TRANSPLANT
     Dosage: SEE IMAGE
     Route: 048
     Dates: start: 20100208, end: 20100209
  7. TACROLIMUS [Suspect]
     Indication: LIVER TRANSPLANT
     Dosage: SEE IMAGE
     Route: 048
     Dates: start: 20100210, end: 20100213
  8. TACROLIMUS [Suspect]
     Indication: LIVER TRANSPLANT
     Dosage: SEE IMAGE
     Route: 048
     Dates: start: 20100214, end: 20100215
  9. TACROLIMUS [Suspect]
     Indication: LIVER TRANSPLANT
     Dosage: SEE IMAGE
     Route: 048
     Dates: start: 20100216, end: 20100218
  10. TACROLIMUS [Suspect]
     Indication: LIVER TRANSPLANT
     Dosage: SEE IMAGE
     Route: 048
     Dates: start: 20100219
  11. MYFORTIC [Concomitant]
  12. SUCRALFATE [Concomitant]
  13. GLYBURIDE [Concomitant]

REACTIONS (1)
  - TRANSIENT ISCHAEMIC ATTACK [None]
